FAERS Safety Report 7768586 (Version 3)
Quarter: 2014Q4

REPORT INFORMATION
  Report Type: Report from Study
  Country: JP (occurrence: JP)
  Receive Date: 20110121
  Receipt Date: 20141029
  Transmission Date: 20150529
  Serious: Yes (Hospitalization, Other)
  Sender: FDA-Public Use
  Company Number: PHHY2010JP43578

PATIENT
  Age: 75 Year
  Sex: Male

DRUGS (16)
  1. TAKEPRON [Concomitant]
     Active Substance: LANSOPRAZOLE
     Indication: PRODUCT USED FOR UNKNOWN INDICATION
     Dosage: 15 MG, UNK
     Route: 048
     Dates: start: 20100529, end: 20100629
  2. CALONAL [Concomitant]
     Active Substance: ACETAMINOPHEN
     Indication: METASTATIC RENAL CELL CARCINOMA
     Dosage: UNK
     Route: 048
     Dates: start: 20100611, end: 20100629
  3. AFINITOR [Suspect]
     Active Substance: EVEROLIMUS
     Indication: METASTATIC RENAL CELL CARCINOMA
     Dosage: 10 MG, DAILY
     Route: 048
     Dates: start: 20100524, end: 20100625
  4. NEXAVAR [Concomitant]
     Active Substance: SORAFENIB
     Indication: METASTATIC RENAL CELL CARCINOMA
     Dosage: 400 MG, UNK
     Route: 048
     Dates: start: 20100409, end: 20100525
  5. TATHION [Concomitant]
     Indication: PRODUCT USED FOR UNKNOWN INDICATION
     Dosage: 300 MG, UNK
     Route: 048
     Dates: start: 20100529, end: 20100629
  6. SELBEX [Concomitant]
     Active Substance: TEPRENONE
     Indication: PRODUCT USED FOR UNKNOWN INDICATION
     Dosage: 180 MG, UNK
     Route: 048
     Dates: start: 20100529, end: 20100629
  7. INTERFERON ALFA NOS [Concomitant]
     Active Substance: INTERFERON ALFA-2A OR INTERFERON ALFA-2B
     Indication: METASTATIC RENAL CELL CARCINOMA
     Dosage: UNK
     Route: 042
     Dates: start: 200610
  8. URSO [Concomitant]
     Active Substance: URSODIOL
     Indication: PRODUCT USED FOR UNKNOWN INDICATION
     Dosage: 300 MG, UNK
     Route: 048
     Dates: start: 20100529, end: 20100629
  9. BAKTAR [Concomitant]
     Active Substance: SULFAMETHOXAZOLE\TRIMETHOPRIM
     Indication: PROPHYLAXIS
     Dosage: 1 DF, UNK
     Route: 048
     Dates: start: 20090627, end: 20100629
  10. SUMIFERON [Concomitant]
     Active Substance: INTERFERON ALFA-N1
     Dosage: UNK
     Route: 042
  11. AFINITOR [Suspect]
     Active Substance: EVEROLIMUS
     Dosage: 10 MG DAILY
     Route: 048
     Dates: start: 20100809, end: 20100809
  12. DECADRON [Concomitant]
     Active Substance: DEXAMETHASONE
     Indication: METASTATIC RENAL CELL CARCINOMA
     Dosage: 1 MG, UNK
     Route: 048
     Dates: start: 20100529, end: 20100625
  13. SUMIFERON [Concomitant]
     Active Substance: INTERFERON ALFA-N1
     Dosage: UNK
     Route: 042
  14. PURSENNID [Concomitant]
     Active Substance: SENNOSIDES A AND B
     Indication: PRODUCT USED FOR UNKNOWN INDICATION
     Dosage: UNK
     Route: 048
     Dates: start: 20100611, end: 20100629
  15. MOHRUS [Concomitant]
     Active Substance: KETOPROFEN
     Indication: METASTATIC RENAL CELL CARCINOMA
     Dosage: 40 MG, UNK
     Route: 048
     Dates: start: 20100529, end: 20100629
  16. SUMIFERON [Concomitant]
     Active Substance: INTERFERON ALFA-N1
     Indication: METASTATIC RENAL CELL CARCINOMA
     Dosage: UNK
     Route: 042
     Dates: start: 200610

REACTIONS (7)
  - Interstitial lung disease [Recovering/Resolving]
  - Pneumonitis [Not Recovered/Not Resolved]
  - Renal impairment [Recovering/Resolving]
  - Malignant neoplasm progression [Not Recovered/Not Resolved]
  - Malaise [Recovering/Resolving]
  - Cough [Unknown]
  - Blood creatinine increased [Not Recovered/Not Resolved]

NARRATIVE: CASE EVENT DATE: 20100625
